FAERS Safety Report 8231203-6 (Version None)
Quarter: 2012Q1

REPORT INFORMATION
  Report Type: 
  Country: None (occurrence: None)
  Receive Date: 20120323
  Receipt Date: 20120323
  Transmission Date: 20120608
  Serious: Yes (Life-Threatening, Other)
  Sender: FDA-Public Use
  Company Number: None

PATIENT
  Age: 31 Year
  Sex: Male
  Weight: 77.11 kg

DRUGS (3)
  1. CYMBALTA [Suspect]
     Indication: PAIN
     Dosage: 30MG
     Route: 048
     Dates: start: 20120301, end: 20120305
  2. CYMBALTA [Suspect]
     Indication: DEPRESSION
     Dosage: 30MG
     Route: 048
     Dates: start: 20120301, end: 20120305
  3. CYMBALTA [Suspect]

REACTIONS (8)
  - CHROMATURIA [None]
  - VOMITING [None]
  - PHOTOPSIA [None]
  - PALPITATIONS [None]
  - MIGRAINE [None]
  - NECK PAIN [None]
  - FAECAL INCONTINENCE [None]
  - INSOMNIA [None]
